FAERS Safety Report 5779867-0 (Version None)
Quarter: 2008Q2

REPORT INFORMATION
  Report Type: 
  Country: None (occurrence: None)
  Receive Date: 20080620
  Receipt Date: 20080508
  Transmission Date: 20081010
  Serious: No
  Sender: FDA-Public Use
  Company Number: US-BAYER-200822793NA

PATIENT
  Sex: Female

DRUGS (1)
  1. YAZ [Suspect]
     Indication: DRUG USE FOR UNKNOWN INDICATION
     Route: 048
     Dates: start: 20080504

REACTIONS (5)
  - CONTACT LENS COMPLICATION [None]
  - EYE IRRITATION [None]
  - FATIGUE [None]
  - INSOMNIA [None]
  - IRRITABILITY [None]
